FAERS Safety Report 24035585 (Version 1)
Quarter: 2024Q3

REPORT INFORMATION
  Report Type: Spontaneous
  Country: JP (occurrence: JP)
  Receive Date: 20240701
  Receipt Date: 20240701
  Transmission Date: 20241016
  Serious: Yes (Other)
  Sender: EMD SERONO INC
  Company Number: JP-Merck Healthcare KGaA-2024031835

PATIENT
  Age: 7 Decade
  Sex: Male

DRUGS (1)
  1. BAVENCIO [Suspect]
     Active Substance: AVELUMAB
     Indication: Product used for unknown indication
     Route: 041
     Dates: start: 2023

REACTIONS (2)
  - Interstitial lung disease [Not Recovered/Not Resolved]
  - Off label use [Unknown]
